FAERS Safety Report 17280110 (Version 3)
Quarter: 2021Q2

REPORT INFORMATION
  Report Type: Spontaneous
  Country: ES (occurrence: ES)
  Receive Date: 20200117
  Receipt Date: 20210427
  Transmission Date: 20210716
  Serious: Yes (Other)
  Sender: FDA-Public Use
  Company Number: ES-AUROBINDO-AUR-APL-2020-001909

PATIENT
  Age: 8 Year
  Sex: Male

DRUGS (14)
  1. IMMUNOGLOBULIN G HUMAN [Concomitant]
     Active Substance: HUMAN IMMUNOGLOBULIN G
     Indication: ENCEPHALITIS CYTOMEGALOVIRUS
     Dosage: UNK, WEEKLY INTRATHECAL CMV?SPECIFIC IGG
     Route: 037
  2. CICLOSPORIN [Suspect]
     Active Substance: CYCLOSPORINE
     Indication: GRAFT VERSUS HOST DISEASE IN GASTROINTESTINAL TRACT
     Dosage: UNK
     Route: 065
  3. CYTOMEGALOVIRUS IMMUNE GLOBULIN [Suspect]
     Active Substance: HUMAN CYTOMEGALOVIRUS IMMUNE GLOBULIN
     Indication: ENCEPHALITIS CYTOMEGALOVIRUS
  4. FLUDARABINE [Suspect]
     Active Substance: FLUDARABINE PHOSPHATE
     Indication: BONE MARROW CONDITIONING REGIMEN
     Dosage: UNK
     Route: 065
  5. GANCICLOVIR. [Suspect]
     Active Substance: GANCICLOVIR
     Indication: MENINGITIS VIRAL
     Dosage: UNK
     Route: 065
  6. GANCICLOVIR. [Suspect]
     Active Substance: GANCICLOVIR
     Indication: ENCEPHALITIS CYTOMEGALOVIRUS
  7. METHYLPREDNISOLONE. [Suspect]
     Active Substance: METHYLPREDNISOLONE
     Indication: GRAFT VERSUS HOST DISEASE IN GASTROINTESTINAL TRACT
     Dosage: UNK
     Route: 065
  8. VALGANCICLOVIR. [Suspect]
     Active Substance: VALGANCICLOVIR
     Indication: CYTOMEGALOVIRUS VIRAEMIA
     Dosage: UNK, 10 WEEKS
     Route: 065
  9. ANTITHYMOCYTE IMMUNOGLOBULIN [Suspect]
     Active Substance: THYMOCYTE IMMUNE GLOBULIN NOS
     Indication: BONE MARROW CONDITIONING REGIMEN
     Dosage: UNK
     Route: 065
  10. CYTOMEGALOVIRUS IMMUNE GLOBULIN [Suspect]
     Active Substance: HUMAN CYTOMEGALOVIRUS IMMUNE GLOBULIN
     Indication: MENINGITIS VIRAL
     Dosage: UNK UNK, EVERY WEEK
     Route: 037
  11. IMMUNOGLOBULIN [IMMUNOGLOBULINS NOS] [Suspect]
     Active Substance: IMMUNE GLOBULIN NOS
     Indication: ENCEPHALITIS CYTOMEGALOVIRUS
     Dosage: 1000 MILLIGRAM/KILOGRAM,TWO WEEK,UNK, 1 G/KG IVIGG INFUSIONS EVERY 2 WEEKS
     Route: 042
  12. CYCLOPHOSPHAMIDE. [Suspect]
     Active Substance: CYCLOPHOSPHAMIDE
     Indication: BONE MARROW CONDITIONING REGIMEN
     Dosage: UNK
     Route: 065
  13. FOSCARNET [Suspect]
     Active Substance: FOSCARNET
     Indication: ENCEPHALITIS CYTOMEGALOVIRUS
     Dosage: UNK
     Route: 065
  14. FOSCARNET [Suspect]
     Active Substance: FOSCARNET
     Indication: MENINGITIS VIRAL

REACTIONS (8)
  - Cytomegalovirus viraemia [Recovered/Resolved]
  - Nephropathy toxic [Unknown]
  - Haematotoxicity [Unknown]
  - Drug ineffective [Unknown]
  - Treatment failure [Unknown]
  - Encephalitis cytomegalovirus [Recovered/Resolved]
  - Meningitis viral [Recovered/Resolved]
  - Off label use [Unknown]
